FAERS Safety Report 5137933-7 (Version None)
Quarter: 2006Q4

REPORT INFORMATION
  Report Type: 
  Country: None (occurrence: None)
  Receive Date: 20061030
  Receipt Date: 20060214
  Transmission Date: 20070319
  Serious: No
  Sender: FDA-Public Use
  Company Number: US-GLAXOSMITHKLINE-A0593681A

PATIENT
  Age: 65 Year
  Sex: Female

DRUGS (8)
  1. ADVAIR HFA [Suspect]
     Indication: ASTHMA
     Dosage: 1PUFF TWICE PER DAY
     Route: 055
     Dates: start: 20030201
  2. THEO-24 [Concomitant]
  3. SINGULAIR [Concomitant]
  4. LORATADINE [Concomitant]
  5. ESTROPIPATE [Concomitant]
  6. RHINOCORT [Concomitant]
  7. METROGEL [Concomitant]
  8. ALBUTEROL [Concomitant]

REACTIONS (1)
  - FUNGAL INFECTION [None]
